FAERS Safety Report 14347037 (Version 1)
Quarter: 2018Q1

REPORT INFORMATION
  Report Type: Spontaneous
  Country: US (occurrence: US)
  Receive Date: 20180101
  Receipt Date: 20180101
  Transmission Date: 20180509
  Serious: No
  Sender: FDA-Public Use
  Company Number: None

PATIENT
  Age: 54 Year
  Sex: Female

DRUGS (2)
  1. MYCOPHENOLATE MOFETIL CAP 250MG [Suspect]
     Active Substance: MYCOPHENOLATE MOFETIL
     Dates: start: 201711
  2. TACROLIMUS CAP 1MG [Concomitant]
     Active Substance: TACROLIMUS
     Dates: start: 201711

REACTIONS (1)
  - Tremor [None]

NARRATIVE: CASE EVENT DATE: 20180101
